FAERS Safety Report 5619376-2 (Version None)
Quarter: 2008Q1

REPORT INFORMATION
  Report Type: 
  Country: None (occurrence: None)
  Receive Date: 20080114
  Receipt Date: 20061125
  Transmission Date: 20080703
  Serious: Yes (Other)
  Sender: FDA-Public Use
  Company Number: A03200607087

PATIENT

DRUGS (5)
  1. PLAVIX [Suspect]
     Dosage: ORAL
     Route: 048
  2. ECOTRIN - ACETYLSALICYLIC ACID - TABLET [Suspect]
     Dosage: ORAL
     Route: 048
  3. LISINOPRIL [Suspect]
     Dosage: ORAL
     Route: 048
  4. PRAVASTATIN SODIUM [Concomitant]
  5. EZETIMIBE [Concomitant]

REACTIONS (3)
  - COUGH [None]
  - HAEMOPTYSIS [None]
  - PAIN IN EXTREMITY [None]
